FAERS Safety Report 6091037-8 (Version None)
Quarter: 2009Q1

REPORT INFORMATION
  Report Type: 
  Country: None (occurrence: None)
  Receive Date: 20090225
  Receipt Date: 20090217
  Transmission Date: 20090719
  Serious: Yes (Hospitalization)
  Sender: FDA-Public Use
  Company Number: PHHY2009JP05722

PATIENT
  Age: 43 Year
  Sex: Female

DRUGS (1)
  1. NEORAL [Suspect]
     Indication: DERMATITIS ATOPIC
     Route: 048

REACTIONS (1)
  - BLOOD PRESSURE DECREASED [None]
